FAERS Safety Report 25124627 (Version 1)
Quarter: 2025Q1

REPORT INFORMATION
  Report Type: Spontaneous
  Country: CN (occurrence: CN)
  Receive Date: 20250326
  Receipt Date: 20250326
  Transmission Date: 20250408
  Serious: Yes (Other)
  Sender: BAYER HEALTHCARE PHARMACEUTICALS INC.
  Company Number: CN-BAYER-2025A040959

PATIENT
  Age: 65 Year
  Sex: Female
  Weight: 55 kg

DRUGS (1)
  1. GLUCOBAY [Suspect]
     Active Substance: ACARBOSE
     Indication: Type 2 diabetes mellitus
     Dosage: 50 MG, TID
     Route: 048
     Dates: start: 20250313, end: 20250313

REACTIONS (3)
  - Abdominal distension [Recovering/Resolving]
  - Blood pressure systolic increased [None]
  - Respiratory rate increased [None]

NARRATIVE: CASE EVENT DATE: 20250313
